FAERS Safety Report 9235557 (Version 1)
Quarter: 2013Q1

REPORT INFORMATION
  Report Type: Spontaneous
  Country: US (occurrence: None)
  Receive Date: 20121031
  Receipt Date: 20121031
  Transmission Date: 20140127
  Serious: No
  Sender: FDA-Public Use
  Company Number: PHEH2012US012018

PATIENT
  Age: 42 Year
  Sex: Female

DRUGS (1)
  1. GILENYA [Suspect]
     Indication: MULTIPLE SCLEROSIS
     Route: 048
     Dates: start: 20111025, end: 201207

REACTIONS (10)
  - Visual impairment [None]
  - Hearing impaired [None]
  - Heart rate increased [None]
  - Pyrexia [None]
  - Urticaria [None]
  - Heart rate irregular [None]
  - Abdominal pain [None]
  - Malaise [None]
  - Blood pressure increased [None]
  - Blister [None]
